FAERS Safety Report 8882511 (Version 1)
Quarter: 2012Q4

REPORT INFORMATION
  Report Type: 
  Country: US (occurrence: US)
  Receive Date: 20121102
  Receipt Date: 20121102
  Transmission Date: 20130627
  Serious: Yes (Hospitalization)
  Sender: FDA-Public Use
  Company Number: US-TEVA-332984USA

PATIENT
  Sex: Male

DRUGS (1)
  1. TRISENOX [Suspect]

REACTIONS (2)
  - Fluid retention [Unknown]
  - Respiratory distress [Unknown]
